FAERS Safety Report 13445737 (Version 19)
Quarter: 2018Q2

REPORT INFORMATION
  Report Type: Spontaneous
  Country: JP (occurrence: JP)
  Receive Date: 20170416
  Receipt Date: 20180524
  Transmission Date: 20180711
  Serious: Yes (Death, Life-Threatening, Hospitalization, Other)
  Sender: FDA-Public Use
  Company Number: JP-009507513-1704JPN001242J

PATIENT
  Age: 53 Year
  Sex: Male
  Weight: 62 kg

DRUGS (7)
  1. METHYLPREDNISOLONE. [Concomitant]
     Active Substance: METHYLPREDNISOLONE
     Indication: PNEUMONITIS
     Dosage: 30 MG, QD
     Route: 051
     Dates: start: 20170603, end: 20170609
  2. DECADRON [Concomitant]
     Active Substance: DEXAMETHASONE
     Indication: PNEUMONITIS
     Dosage: 3 MG, QD
     Route: 048
     Dates: start: 20170419, end: 20170426
  3. DECADRON [Concomitant]
     Active Substance: DEXAMETHASONE
     Dosage: 2 MG, QD
     Route: 048
     Dates: start: 20170503, end: 20170512
  4. DECADRON [Concomitant]
     Active Substance: DEXAMETHASONE
     Dosage: 2.5 MG, QD
     Route: 048
     Dates: start: 20170427, end: 20170502
  5. METHYLPREDNISOLONE. [Concomitant]
     Active Substance: METHYLPREDNISOLONE
     Dosage: 20 MG, QD
     Route: 051
     Dates: start: 20170610, end: 20170615
  6. KEYTRUDA [Suspect]
     Active Substance: PEMBROLIZUMAB
     Indication: LUNG ADENOCARCINOMA
     Dosage: 200 MG, Q3W
     Route: 041
     Dates: start: 20170314, end: 20170502
  7. DECADRON [Concomitant]
     Active Substance: DEXAMETHASONE
     Dosage: 1.5 MG, QD
     Route: 048
     Dates: start: 20170513, end: 20170521

REACTIONS (4)
  - Skin infection [Recovering/Resolving]
  - Pneumonitis [Recovering/Resolving]
  - Malignant neoplasm progression [Fatal]
  - Pneumothorax [Not Recovered/Not Resolved]

NARRATIVE: CASE EVENT DATE: 20170321
